FAERS Safety Report 8897960 (Version 1)
Quarter: 2012Q4

REPORT INFORMATION
  Report Type: 
  Country: US (occurrence: US)
  Receive Date: 20121108
  Receipt Date: 20121108
  Transmission Date: 20130627
  Serious: No
  Sender: FDA-Public Use
  Company Number: US-AMGEN-USASP2012033004

PATIENT
  Sex: Female
  Weight: 74.83 kg

DRUGS (3)
  1. ENBREL [Suspect]
     Indication: PRODUCT USED FOR UNKNOWN INDICATION
     Dosage: 25 mg, 2 times/wk
     Route: 058
  2. IBUPROFEN [Concomitant]
     Dosage: 200 mg, UNK
  3. LEVOTHYROXIN [Concomitant]
     Dosage: 25 mug, UNK

REACTIONS (3)
  - Injection site vesicles [Unknown]
  - Injection site bruising [Unknown]
  - Injection site pruritus [Unknown]
